FAERS Safety Report 7040564-5 (Version None)
Quarter: 2010Q4

REPORT INFORMATION
  Report Type: 
  Country: None (occurrence: None)
  Receive Date: 20101006
  Receipt Date: 20100928
  Transmission Date: 20110411
  Serious: Yes (Other)
  Sender: FDA-Public Use
  Company Number: 100198

PATIENT
  Age: 63 Year
  Sex: Male
  Weight: 151.955 kg

DRUGS (4)
  1. GOLYTELY [Suspect]
     Indication: COLONOSCOPY
     Dosage: 5L/1X/PO
     Route: 048
     Dates: end: 20090101
  2. JANUVIA [Concomitant]
  3. AMARYL [Concomitant]
  4. VITAMIN B-12 [Concomitant]

REACTIONS (4)
  - BLINDNESS TRANSIENT [None]
  - EYE DISORDER [None]
  - MACULAR DEGENERATION [None]
  - RETINAL DETACHMENT [None]
